FAERS Safety Report 4941266-9 (Version None)
Quarter: 2006Q1

REPORT INFORMATION
  Report Type: 
  Country: None (occurrence: None)
  Receive Date: 20060313
  Receipt Date: 20050801
  Transmission Date: 20060701
  Serious: Yes (Death)
  Sender: FDA-Public Use
  Company Number: US-MERCK-0508USA00851

PATIENT
  Age: 74 Year
  Sex: Male
  Weight: 105 kg

DRUGS (11)
  1. VIOXX [Suspect]
     Indication: PAIN
     Route: 048
     Dates: start: 20000101, end: 20030101
  2. VIOXX [Suspect]
     Route: 048
     Dates: start: 20000101, end: 20030101
  3. ATENOLOL [Concomitant]
     Route: 065
  4. NITRO-DUR [Concomitant]
     Route: 065
  5. TEMAZEPAM [Concomitant]
     Route: 065
  6. SULFASALAZINE [Concomitant]
     Route: 065
  7. SPIRONOLACTONE [Concomitant]
     Route: 065
  8. PREDNISONE [Concomitant]
     Route: 065
  9. FUROSEMIDE [Concomitant]
     Route: 065
  10. QUININE [Concomitant]
     Route: 065
  11. ALLEGRA [Concomitant]
     Route: 065

REACTIONS (8)
  - ARRHYTHMIA [None]
  - CONGENITAL ARTERIAL MALFORMATION [None]
  - DIABETES MELLITUS [None]
  - GASTROINTESTINAL HAEMORRHAGE [None]
  - HYPERTENSION [None]
  - HYPOVOLAEMIC SHOCK [None]
  - PERIPHERAL VASCULAR DISORDER [None]
  - RENAL DISORDER [None]
